FAERS Safety Report 22400450 (Version 1)
Quarter: 2023Q2

REPORT INFORMATION
  Report Type: Spontaneous
  Country: KW (occurrence: KW)
  Receive Date: 20230602
  Receipt Date: 20230602
  Transmission Date: 20230722
  Serious: Yes (Death, Other)
  Sender: FDA-Public Use
  Company Number: KW-BIOMARINAP-KW-2023-150705

PATIENT

DRUGS (1)
  1. NAGLAZYME [Suspect]
     Active Substance: GALSULFASE
     Indication: Mucopolysaccharidosis VI
     Dosage: UNK, QW
     Route: 042

REACTIONS (2)
  - Death [Fatal]
  - Upper respiratory tract infection [Unknown]

NARRATIVE: CASE EVENT DATE: 20230529
